FAERS Safety Report 9877373 (Version 1)
Quarter: 2014Q1

REPORT INFORMATION
  Report Type: Other
  Country: US (occurrence: US)
  Receive Date: 20140206
  Receipt Date: 20140206
  Transmission Date: 20141002
  Serious: No
  Sender: FDA-Public Use
  Company Number: US-ACORDA-ACO_38323_2013

PATIENT
  Sex: Female

DRUGS (5)
  1. AMPYRA [Suspect]
     Indication: GAIT DISTURBANCE
     Dosage: 10 MG, BID
     Route: 065
     Dates: start: 2010, end: 2012
  2. AMPYRA [Suspect]
     Dosage: 10 MG, BID
     Route: 065
     Dates: start: 20130407
  3. BACLOFEN [Concomitant]
     Indication: MUSCLE SPASTICITY
  4. ZANAFLEX [Concomitant]
     Indication: MUSCLE SPASTICITY
  5. EFFEXOR [Concomitant]
     Indication: PRODUCT USED FOR UNKNOWN INDICATION

REACTIONS (4)
  - Depression [Recovered/Resolved]
  - Muscular weakness [Unknown]
  - Therapeutic response unexpected [Unknown]
  - Multiple sclerosis relapse [Recovered/Resolved]
